FAERS Safety Report 20652715 (Version 1)
Quarter: 2022Q1

REPORT INFORMATION
  Report Type: Spontaneous
  Country: MX (occurrence: MX)
  Receive Date: 20220330
  Receipt Date: 20220330
  Transmission Date: 20220423
  Serious: Yes (Other)
  Sender: FDA-Public Use
  Company Number: MX-NOVARTISPH-NVSC2022MX071802

PATIENT
  Sex: Female

DRUGS (1)
  1. ENTRESTO [Suspect]
     Active Substance: SACUBITRIL\VALSARTAN
     Indication: Product used for unknown indication
     Dosage: UNK (STARTED LAST FRIDAY)
     Route: 065
     Dates: start: 202203

REACTIONS (5)
  - Arrhythmia [Unknown]
  - Hyperkalaemia [Unknown]
  - Rash [Not Recovered/Not Resolved]
  - Stress [Unknown]
  - Insomnia [Unknown]
